FAERS Safety Report 9436763 (Version 2)
Quarter: 2013Q3

REPORT INFORMATION
  Report Type: Spontaneous
  Country: GB (occurrence: GB)
  Receive Date: 20130802
  Receipt Date: 20130927
  Transmission Date: 20140515
  Serious: Yes (Other)
  Sender: FDA-Public Use
  Company Number: GB-JNJFOC-20130716244

PATIENT
  Sex: Female

DRUGS (1)
  1. STELARA [Suspect]
     Indication: PSORIASIS
     Route: 058

REACTIONS (4)
  - Dyspnoea exertional [Recovering/Resolving]
  - Lip swelling [Recovering/Resolving]
  - Oropharyngeal pain [Recovering/Resolving]
  - Joint swelling [Recovering/Resolving]
